FAERS Safety Report 10562033 (Version 1)
Quarter: 2014Q4

REPORT INFORMATION
  Report Type: Spontaneous
  Country: SE (occurrence: SE)
  Receive Date: 20141104
  Receipt Date: 20141104
  Transmission Date: 20150529
  Serious: Yes (Life-Threatening, Hospitalization)
  Sender: FDA-Public Use
  Company Number: SE-BRISTOL-MYERS SQUIBB COMPANY-21520267

PATIENT
  Age: 69 Year
  Sex: Female

DRUGS (10)
  1. ENALAPRIL [Suspect]
     Active Substance: ENALAPRIL
     Dosage: TABS
     Dates: end: 20140928
  2. CHEMOTHERAPY [Suspect]
     Active Substance: UNSPECIFIED INGREDIENT
     Indication: UTERINE CANCER
  3. METFORMIN HCL TABS [Suspect]
     Active Substance: METFORMIN HYDROCHLORIDE
     Dates: end: 20140928
  4. SIMVASTATIN. [Concomitant]
     Active Substance: SIMVASTATIN
  5. BISOPROLOL [Concomitant]
     Active Substance: BISOPROLOL
  6. FORXIGA [Suspect]
     Active Substance: DAPAGLIFLOZIN
     Dosage: TABS
     Dates: end: 20141003
  7. INNOHEP [Concomitant]
     Active Substance: TINZAPARIN SODIUM
  8. ELIQUIS [Concomitant]
     Active Substance: APIXABAN
  9. JANUVIA [Concomitant]
     Active Substance: SITAGLIPTIN PHOSPHATE
  10. AMLODIPINE [Concomitant]
     Active Substance: AMLODIPINE BESYLATE

REACTIONS (2)
  - Renal failure [Not Recovered/Not Resolved]
  - Lactic acidosis [Not Recovered/Not Resolved]

NARRATIVE: CASE EVENT DATE: 20140928
